FAERS Safety Report 11037961 (Version 4)
Quarter: 2015Q3

REPORT INFORMATION
  Report Type: Spontaneous
  Country: US (occurrence: US)
  Receive Date: 20150416
  Receipt Date: 20150724
  Transmission Date: 20151125
  Serious: No
  Sender: FDA-Public Use
  Company Number: US-PFIZER INC-2015126129

PATIENT
  Age: 65 Year
  Sex: Female

DRUGS (6)
  1. INLYTA [Suspect]
     Active Substance: AXITINIB
     Dosage: 5 MG, (STRENGTH)
     Route: 048
  2. INLYTA [Suspect]
     Active Substance: AXITINIB
     Indication: RENAL CANCER
     Dosage: 7 MG, CYCLIC (TWICE DAILY, 2 WEEKS ON/2 WEEKS OFF)
     Route: 048
     Dates: start: 20150321
  3. INLYTA [Suspect]
     Active Substance: AXITINIB
     Dosage: 5 MG
     Route: 048
     Dates: start: 20150317
  4. INLYTA [Suspect]
     Active Substance: AXITINIB
     Dosage: 1 MG,  (STRENGTH)
     Route: 048
  5. LEVOTHYROXINE. [Concomitant]
     Active Substance: LEVOTHYROXINE
  6. CITALOPRAM [Concomitant]
     Active Substance: CITALOPRAM HYDROBROMIDE

REACTIONS (3)
  - Disease progression [Unknown]
  - Pain of skin [Recovered/Resolved]
  - Renal cancer [Unknown]
